FAERS Safety Report 25228090 (Version 1)
Quarter: 2025Q2

REPORT INFORMATION
  Report Type: Spontaneous
  Country: US (occurrence: US)
  Receive Date: 20250423
  Receipt Date: 20250423
  Transmission Date: 20250717
  Serious: Yes (Other)
  Sender: ABBVIE
  Company Number: US-ABBVIE-6239973

PATIENT

DRUGS (1)
  1. REFRESH PLUS [Suspect]
     Active Substance: CARBOXYMETHYLCELLULOSE SODIUM
     Indication: Dry eye
     Route: 047

REACTIONS (7)
  - Endocrine ophthalmopathy [Unknown]
  - Multiple use of single-use product [Unknown]
  - Eye operation [Unknown]
  - Cataract [Unknown]
  - Muscle operation [Unknown]
  - Exophthalmos [Unknown]
  - Product container issue [Unknown]
